FAERS Safety Report 6473266-4 (Version None)
Quarter: 2009Q4

REPORT INFORMATION
  Report Type: 
  Country: None (occurrence: None)
  Receive Date: 20091204
  Receipt Date: 20080805
  Transmission Date: 20100525
  Serious: Yes (Hospitalization, Other)
  Sender: FDA-Public Use
  Company Number: US-ELI_LILLY_AND_COMPANY-US200806000920

PATIENT
  Sex: Female
  Weight: 55.329 kg

DRUGS (11)
  1. FORTEO [Suspect]
     Indication: OSTEOPOROSIS
     Dates: start: 20080101, end: 20080101
  2. CALCIUM [Concomitant]
     Indication: OSTEOPOROSIS
  3. TOPROL-XL [Concomitant]
     Dosage: 100 MG, DAILY (1/D)
  4. TOPROL-XL [Concomitant]
     Dosage: 50 MG, EACH EVENING
  5. TRICOR [Concomitant]
     Dosage: 160 MG, DAILY (1/D)
  6. SYNTHROID [Concomitant]
     Dosage: 50 UG, DAILY (1/D)
  7. LOVENOX [Concomitant]
  8. IRON [Concomitant]
     Dosage: 325 MG, 3/D
  9. ZYPREXA [Concomitant]
     Dosage: 75 MG, EACH EVENING
  10. NORVASC [Concomitant]
     Dosage: 5 MG, DAILY (1/D)
  11. NORVASC [Concomitant]
     Dosage: 2.5 MG, DAILY (1/D)
     Dates: start: 20080507

REACTIONS (24)
  - ANAEMIA [None]
  - ANAESTHETIC COMPLICATION [None]
  - ASTHENIA [None]
  - ATRIAL FIBRILLATION [None]
  - CONFUSIONAL STATE [None]
  - DELIRIUM [None]
  - DEMENTIA [None]
  - DIARRHOEA [None]
  - DIZZINESS [None]
  - DYSPNOEA [None]
  - HYPOKALAEMIA [None]
  - HYPONATRAEMIA [None]
  - HYPOTENSION [None]
  - LIVER FUNCTION TEST ABNORMAL [None]
  - NAUSEA [None]
  - OESOPHAGEAL CANDIDIASIS [None]
  - OESOPHAGEAL SPASM [None]
  - OESOPHAGEAL ULCER [None]
  - OESOPHAGITIS [None]
  - OROPHARYNGEAL CANDIDIASIS [None]
  - POST PROCEDURAL OEDEMA [None]
  - TACHYCARDIA [None]
  - TRANSFUSION [None]
  - URINARY TRACT INFECTION [None]
